FAERS Safety Report 23895360 (Version 1)
Quarter: 2024Q2

REPORT INFORMATION
  Report Type: Spontaneous
  Country: US (occurrence: None)
  Receive Date: 20240523
  Receipt Date: 20240523
  Transmission Date: 20240716
  Serious: Yes (Death)
  Sender: FDA-Public Use
  Company Number: None

PATIENT
  Age: 37 Year
  Sex: Female

DRUGS (12)
  1. ENVARSUS XR [Suspect]
     Active Substance: TACROLIMUS
     Indication: Lung transplant
     Dosage: FREQUENCY : DAILY;?
     Route: 048
     Dates: start: 20240105, end: 20240514
  2. ENVARSUS XR [Suspect]
     Active Substance: TACROLIMUS
     Indication: Lung transplant
     Dosage: FREQUENCY : DAILY;?
     Route: 048
     Dates: start: 20240104, end: 20240514
  3. LOPERAMIDE [Concomitant]
     Active Substance: LOPERAMIDE
  4. advair diskus 250/50mcg [Concomitant]
  5. SERTRALINE HYDROCHLORIDE [Concomitant]
     Active Substance: SERTRALINE HYDROCHLORIDE
  6. AZITHROMYCIN ANHYDROUS [Concomitant]
     Active Substance: AZITHROMYCIN ANHYDROUS
  7. mg plus protein 133mg [Concomitant]
  8. PREDNISONE [Concomitant]
     Active Substance: PREDNISONE
  9. SODIUM CHLORIDE [Concomitant]
     Active Substance: SODIUM CHLORIDE
  10. ipratropium/albuterol 0.5/3mg [Concomitant]
  11. vitamin B-1 100mg [Concomitant]
  12. FOLIC ACID [Concomitant]
     Active Substance: FOLIC ACID

REACTIONS (1)
  - Lung transplant rejection [None]

NARRATIVE: CASE EVENT DATE: 20240514
